FAERS Safety Report 4535052-1 (Version None)
Quarter: 2004Q4

REPORT INFORMATION
  Report Type: 
  Country: None (occurrence: None)
  Receive Date: 20041222
  Receipt Date: 20040322
  Transmission Date: 20050328
  Serious: Yes (Congenital Anomaly)
  Sender: FDA-Public Use
  Company Number: BR-ROCHE-362648

PATIENT
  Sex: Male
  Weight: 3.3 kg

DRUGS (3)
  1. ROACUTAN [Suspect]
     Indication: ACNE
     Dates: start: 20030815, end: 20031225
  2. ROACUTAN [Suspect]
     Dates: start: 20040115, end: 20040215
  3. DIANE [Concomitant]
     Indication: CONTRACEPTION
     Dates: start: 20021015, end: 20031015

REACTIONS (4)
  - CAESAREAN SECTION [None]
  - DRUG EXPOSURE DURING PREGNANCY [None]
  - EAR MALFORMATION [None]
  - HEART DISEASE CONGENITAL [None]
